FAERS Safety Report 6084181-2 (Version None)
Quarter: 2009Q1

REPORT INFORMATION
  Report Type: 
  Country: None (occurrence: None)
  Receive Date: 20090219
  Receipt Date: 20090210
  Transmission Date: 20090719
  Serious: Yes (Hospitalization)
  Sender: FDA-Public Use
  Company Number: US-ELI_LILLY_AND_COMPANY-US200902002179

PATIENT
  Sex: Female
  Weight: 117.91 kg

DRUGS (14)
  1. BYETTA [Suspect]
     Indication: TYPE 2 DIABETES MELLITUS
     Dosage: 5 UG, 2/D
     Route: 058
     Dates: start: 20070101, end: 20070101
  2. BYETTA [Suspect]
     Dosage: 10 UG, 2/D
     Route: 058
     Dates: start: 20070101
  3. CELEXA [Concomitant]
     Indication: ANXIETY
     Dosage: 20 MG, DAILY (1/D)
  4. CLARITIN [Concomitant]
     Indication: MULTIPLE ALLERGIES
  5. NEURONTIN [Concomitant]
     Indication: NEURALGIA
  6. ACTOS [Concomitant]
     Indication: TYPE 2 DIABETES MELLITUS
     Dosage: 30 MG, DAILY (1/D)
  7. COZAAR [Concomitant]
     Dosage: 40 MG, DAILY (1/D)
  8. IMDUR [Concomitant]
  9. GLUCOVANCE [Concomitant]
     Indication: TYPE 2 DIABETES MELLITUS
     Dosage: 5/500MG
     Dates: end: 20070901
  10. GLUCOVANCE [Concomitant]
     Dosage: 5/500MG
     Dates: start: 20070101
  11. LASIX [Concomitant]
     Indication: DIURETIC THERAPY
     Dosage: 40 MG, DAILY (1/D)
  12. MULTI-VITAMIN [Concomitant]
  13. LIPITOR [Concomitant]
     Indication: BLOOD CHOLESTEROL INCREASED
     Dosage: 40 MG, DAILY (1/D)
  14. ALEVE [Concomitant]
     Indication: ARTHRITIS

REACTIONS (16)
  - ABDOMINAL DISCOMFORT [None]
  - ARTHRITIS [None]
  - CATARACT [None]
  - CELLULITIS [None]
  - EFFUSION [None]
  - EYE DISORDER [None]
  - GASTROOESOPHAGEAL REFLUX DISEASE [None]
  - INCISIONAL HERNIA [None]
  - INSOMNIA [None]
  - NAUSEA [None]
  - NEUROPATHY PERIPHERAL [None]
  - NODULE [None]
  - PAIN [None]
  - PAIN IN EXTREMITY [None]
  - VEIN DISORDER [None]
  - WEIGHT DECREASED [None]
